FAERS Safety Report 7527917-3 (Version None)
Quarter: 2011Q2

REPORT INFORMATION
  Report Type: 
  Country: None (occurrence: None)
  Receive Date: 20110516
  Receipt Date: 20100928
  Transmission Date: 20111010
  Serious: Yes (Hospitalization)
  Sender: FDA-Public Use
  Company Number: FDB-2010-038

PATIENT
  Age: 34 Year
  Sex: Female

DRUGS (14)
  1. LAMICTAL [Concomitant]
  2. CLONOPIN [Concomitant]
  3. PROAIR HFA [Concomitant]
  4. MULTI-VITAMIN [Concomitant]
  5. ANAPHROX [Concomitant]
  6. ADFAIR [Concomitant]
  7. SINGULAIR [Concomitant]
  8. ALLEGRA [Concomitant]
  9. NASONEX [Concomitant]
  10. VITAMIN B COMPLEX CAP [Concomitant]
  11. PRILOSEC [Concomitant]
  12. CYMBALTA [Concomitant]
  13. TECHNETIUM 99M SULFUR COLLOID SOLUTION/INJ [Suspect]
     Indication: SCAN LYMPH NODES
     Dosage: 0.4MCI, SUBCUTANIOUS/TOE
     Route: 058
     Dates: start: 20100928
  14. SYNTHROID [Concomitant]

REACTIONS (1)
  - HYPERSENSITIVITY [None]
